FAERS Safety Report 6699207-2 (Version None)
Quarter: 2010Q2

REPORT INFORMATION
  Report Type: 
  Country: None (occurrence: None)
  Receive Date: 20100421
  Receipt Date: 20091209
  Transmission Date: 20101027
  Serious: Yes (Other)
  Sender: FDA-Public Use
  Company Number: 20090597

PATIENT
  Age: 42 Year
  Sex: Female

DRUGS (4)
  1. DEXFERRUM [Suspect]
     Indication: IRON DEFICIENCY ANAEMIA
     Dosage: 100 MG IN 10 ML NS OVER 35 MIN INTRAVENOUS
     Route: 042
     Dates: start: 20091125, end: 20091125
  2. BENADRYL [Concomitant]
  3. IMITREX [Concomitant]
  4. MICROZIDE [Concomitant]

REACTIONS (2)
  - BACK PAIN [None]
  - HYPOTENSION [None]
